FAERS Safety Report 10681957 (Version 1)
Quarter: 2014Q4

REPORT INFORMATION
  Report Type: Spontaneous
  Country: LT (occurrence: None)
  Receive Date: 20141224
  Receipt Date: 20141224
  Transmission Date: 20150529
  Serious: Yes (Other)
  Sender: FDA-Public Use
  Company Number: FK201406468

PATIENT
  Age: 37 Year
  Sex: Female

DRUGS (11)
  1. CYCLOPHOSPHAMIDE (CYCLOPHOSPHAMIDE) [Suspect]
     Active Substance: CYCLOPHOSPHAMIDE
     Indication: HODGKIN^S DISEASE STAGE IV
     Dosage: CYCLICAL
  2. PROCARBAZINE (PROCARBAZINE) [Suspect]
     Active Substance: PROCARBAZINE
     Indication: HODGKIN^S DISEASE STAGE IV
     Dosage: CYCLICAL
  3. DOXORUBICIN (DOXORUBICIN) [Suspect]
     Active Substance: DOXORUBICIN
     Indication: HODGKIN^S DISEASE STAGE IV
     Dosage: CYCLICAL
  4. VINBLASTINE (VINBLASTINE) [Concomitant]
  5. BLEOMYCIN [Suspect]
     Active Substance: BLEOMYCIN SULFATE
     Indication: HODGKIN^S DISEASE STAGE IV
     Dosage: CYCLICAL
  6. VINCRISTINE (VINCRISTINE) [Suspect]
     Active Substance: VINCRISTINE
     Indication: HODGKIN^S DISEASE STAGE IV
     Dosage: CYCLICAL
  7. ADRIAMYCIN (DOXORUBICIN) [Concomitant]
  8. FILGRASTIM (FILGRASTIM) [Concomitant]
     Active Substance: FILGRASTIM
  9. ETOPOSIDE (ETOPOSIDE) [Suspect]
     Active Substance: ETOPOSIDE
     Indication: HODGKIN^S DISEASE STAGE IV
     Dosage: CYCLICAL
  10. PREDNISONE (PREDNISONE) [Suspect]
     Active Substance: PREDNISONE
     Indication: HODGKIN^S DISEASE STAGE IV
     Dosage: CYCLICAL
  11. DACARBAZINE (DACARBAZINE) [Concomitant]
     Active Substance: DACARBAZINE

REACTIONS (1)
  - Arthritis [None]
